FAERS Safety Report 18480587 (Version 1)
Quarter: 2020Q4

REPORT INFORMATION
  Report Type: Spontaneous
  Country: US (occurrence: US)
  Receive Date: 20201109
  Receipt Date: 20201109
  Transmission Date: 20210114
  Serious: No
  Sender: FDA-Public Use
  Company Number: None

PATIENT
  Age: 75 Year
  Sex: Male
  Weight: 71 kg

DRUGS (1)
  1. DASATINIB. [Suspect]
     Active Substance: DASATINIB

REACTIONS (5)
  - Hypoxia [None]
  - Pulmonary hypertension [None]
  - Liver function test increased [None]
  - Therapy interrupted [None]
  - Pleural effusion [None]
